FAERS Safety Report 8559827 (Version 4)
Quarter: 2013Q2

REPORT INFORMATION
  Report Type: Spontaneous
  Country: US (occurrence: US)
  Receive Date: 20120514
  Receipt Date: 20130530
  Transmission Date: 20140414
  Serious: Yes (Hospitalization)
  Sender: FDA-Public Use
  Company Number: US-US-EMD SERONO, INC.-7130539

PATIENT
  Age: 48 Year
  Sex: Female
  Weight: 63 kg

DRUGS (7)
  1. REBIF [Suspect]
     Indication: MULTIPLE SCLEROSIS
     Route: 058
     Dates: start: 20120330
  2. REBIF [Suspect]
     Route: 058
  3. CITALOPRAM [Concomitant]
     Indication: BIPOLAR I DISORDER
  4. ATIVAN [Concomitant]
     Indication: PRODUCT USED FOR UNKNOWN INDICATION
  5. RITALIN [Concomitant]
     Indication: ATTENTION DEFICIT/HYPERACTIVITY DISORDER
  6. VICODIN [Concomitant]
     Indication: HEADACHE
  7. VICODIN [Concomitant]
     Indication: MIGRAINE

REACTIONS (6)
  - Cerebrovascular accident [Unknown]
  - Grand mal convulsion [Recovered/Resolved]
  - Diarrhoea [Recovered/Resolved]
  - Lymphadenopathy [Recovered/Resolved]
  - Influenza [Recovered/Resolved]
  - Gait disturbance [Unknown]
